FAERS Safety Report 20079914 (Version 1)
Quarter: 2021Q4

REPORT INFORMATION
  Report Type: Spontaneous
  Country: GB (occurrence: GB)
  Receive Date: 20211117
  Receipt Date: 20211117
  Transmission Date: 20220304
  Serious: Yes (Hospitalization, Congenital Anomaly, Other)
  Sender: FDA-Public Use
  Company Number: GB-GILEAD-2021-0555805

PATIENT
  Sex: Female
  Weight: 1.36 kg

DRUGS (2)
  1. REMDESIVIR [Suspect]
     Active Substance: REMDESIVIR
     Indication: COVID-19
     Dosage: 3.4 MG
     Route: 042
     Dates: start: 20211103, end: 20211103
  2. REMDESIVIR [Suspect]
     Active Substance: REMDESIVIR
     Dosage: 1.7 MG
     Route: 042
     Dates: start: 20211104, end: 20211104

REACTIONS (8)
  - COVID-19 pneumonia [Unknown]
  - Cerebral ventricle dilatation [Unknown]
  - Neonatal respiratory distress syndrome [Unknown]
  - Inflammatory marker increased [Not Recovered/Not Resolved]
  - Bradycardia [Unknown]
  - General physical health deterioration [Not Recovered/Not Resolved]
  - Low birth weight baby [Not Recovered/Not Resolved]
  - Off label use [Unknown]
